FAERS Safety Report 5138622-5 (Version None)
Quarter: 2006Q4

REPORT INFORMATION
  Report Type: 
  Country: None (occurrence: None)
  Receive Date: 20061024
  Receipt Date: 20061009
  Transmission Date: 20070319
  Serious: Yes (Death, Hospitalization)
  Sender: FDA-Public Use
  Company Number: 2006001284

PATIENT
  Age: 71 Year
  Sex: Male

DRUGS (11)
  1. ERLOTINIB [Suspect]
     Indication: HEPATIC NEOPLASM MALIGNANT
     Dosage: 1400 MG (Q WEEK, ON DAY 2), ORAL
     Route: 048
     Dates: start: 20060607, end: 20060607
  2. ALTIMA                        (PEMETREXED) [Suspect]
     Dosage: 1000 MG, ON CYCLE 1, DAY 1, INTRAVENOUS
     Route: 042
     Dates: start: 20060606, end: 20060606
  3. ATENOLOL [Concomitant]
  4. SPIRONOLACTONE [Concomitant]
  5. ISOSORBIDE (ISOSORBIDE) [Concomitant]
  6. DOXAZOCIN (DOXAZOSIN) [Concomitant]
  7. PHENERGAN (BELLASPON RETARD) [Concomitant]
  8. ZOFRAN [Concomitant]
  9. DECADRON [Concomitant]
  10. VICODIN [Concomitant]
  11. HYDROCHLOROTHIAZIDE [Concomitant]

REACTIONS (17)
  - ABDOMINAL DISTENSION [None]
  - ACUTE HEPATIC FAILURE [None]
  - ATELECTASIS [None]
  - DEHYDRATION [None]
  - DISEASE PROGRESSION [None]
  - DRUG INTOLERANCE [None]
  - HEPATIC ENCEPHALOPATHY [None]
  - HEPATIC MASS [None]
  - HYPERKALAEMIA [None]
  - HYPOTENSION [None]
  - HYPOXIA [None]
  - LUNG NEOPLASM [None]
  - ORAL INTAKE REDUCED [None]
  - ORGAN FAILURE [None]
  - PLEURAL EFFUSION [None]
  - RENAL FAILURE ACUTE [None]
  - UNRESPONSIVE TO STIMULI [None]
